FAERS Safety Report 7798213-4 (Version None)
Quarter: 2011Q4

REPORT INFORMATION
  Report Type: 
  Country: None (occurrence: None)
  Receive Date: 20111005
  Receipt Date: 20111003
  Transmission Date: 20120403
  Serious: Yes (Death)
  Sender: FDA-Public Use
  Company Number: US-JNJFOC-20111001393

PATIENT
  Age: 54 Year
  Sex: Female

DRUGS (1)
  1. REOPRO [Suspect]
     Indication: MYOCARDIAL INFARCTION
     Route: 042

REACTIONS (1)
  - DEATH [None]
